FAERS Safety Report 10049823 (Version 1)
Quarter: 2014Q2

REPORT INFORMATION
  Report Type: Spontaneous
  Country: ES (occurrence: ES)
  Receive Date: 20140401
  Receipt Date: 20140401
  Transmission Date: 20141212
  Serious: Yes (Hospitalization)
  Sender: FDA-Public Use
  Company Number: ES-SA-2014SA036343

PATIENT
  Age: 96 Year
  Sex: Male
  Weight: 70 kg

DRUGS (1)
  1. SEGURIL [Suspect]
     Indication: HYPERTENSION
     Route: 048
     Dates: start: 201312

REACTIONS (4)
  - Haematocrit decreased [Not Recovered/Not Resolved]
  - Hypotension [Not Recovered/Not Resolved]
  - Anaemia [Not Recovered/Not Resolved]
  - Platelet count decreased [Not Recovered/Not Resolved]
